FAERS Safety Report 15975957 (Version 1)
Quarter: 2019Q1

REPORT INFORMATION
  Report Type: Spontaneous
  Country: US (occurrence: US)
  Receive Date: 20190218
  Receipt Date: 20190218
  Transmission Date: 20190418
  Serious: No
  Sender: FDA-Public Use
  Company Number: US-009507513-1902USA002376

PATIENT
  Sex: Male

DRUGS (2)
  1. NASONEX [Suspect]
     Active Substance: MOMETASONE FUROATE
     Indication: OROPHARYNGEAL PAIN
     Dosage: 1 SPRAY PER NOSTRIL DAILY
     Route: 045
     Dates: start: 201002, end: 201002
  2. ASTELIN (AZELASTINE HYDROCHLORIDE) [Suspect]
     Active Substance: AZELASTINE HYDROCHLORIDE
     Indication: OROPHARYNGEAL PAIN
     Dosage: 548 MICROGRAM, QD (137 MCG, TWO SPRAYS PER NOSTRIL ONCE DAILY)
     Route: 045
     Dates: start: 201002, end: 201002

REACTIONS (1)
  - Drug ineffective for unapproved indication [Not Recovered/Not Resolved]

NARRATIVE: CASE EVENT DATE: 20100215
